FAERS Safety Report 12284536 (Version 1)
Quarter: 2016Q2

REPORT INFORMATION
  Report Type: Spontaneous
  Country: US (occurrence: US)
  Receive Date: 20160420
  Receipt Date: 20160420
  Transmission Date: 20160815
  Serious: No
  Sender: FDA-Public Use
  Company Number: US-TEVA-645555USA

PATIENT
  Sex: Male

DRUGS (2)
  1. ASPIRIN (E.C.) [Concomitant]
     Active Substance: ASPIRIN
  2. NICOTINIC ACID [Suspect]
     Active Substance: NIACIN
     Indication: HIGH DENSITY LIPOPROTEIN INCREASED
     Route: 065

REACTIONS (2)
  - Flushing [Unknown]
  - Pruritus [Unknown]
